FAERS Safety Report 12165992 (Version 1)
Quarter: 2016Q1

REPORT INFORMATION
  Report Type: Spontaneous
  Country: US (occurrence: US)
  Receive Date: 20160309
  Receipt Date: 20160309
  Transmission Date: 20160526
  Serious: Yes (Other)
  Sender: FDA-Public Use
  Company Number: US-BAYER-2016-044799

PATIENT
  Age: 62 Year
  Sex: Male
  Weight: 129.25 kg

DRUGS (1)
  1. AFRIN ORIGINAL [Suspect]
     Active Substance: OXYMETAZOLINE HYDROCHLORIDE
     Indication: NASAL CONGESTION
     Dosage: 1 DF, 1-2 PUMP SPRAYS PER NOSTRIL, 2-3 TIMES A DAY
     Route: 045

REACTIONS (5)
  - Wrong technique in product usage process [None]
  - Intentional product misuse [None]
  - Product closure removal difficult [None]
  - Drug dependence [None]
  - Product use issue [None]
